FAERS Safety Report 6035431-X (Version None)
Quarter: 2009Q1

REPORT INFORMATION
  Report Type: 
  Country: None (occurrence: None)
  Receive Date: 20090113
  Receipt Date: 20090108
  Transmission Date: 20090719
  Serious: Yes (Hospitalization)
  Sender: FDA-Public Use
  Company Number: US-JNJFOC-20090101832

PATIENT
  Sex: Female
  Weight: 57.02 kg

DRUGS (15)
  1. LEVAQUIN [Suspect]
     Indication: PNEUMONIA
     Route: 048
  2. BEVACIZUMAB [Suspect]
     Indication: BREAST CANCER METASTATIC
     Dosage: EVERY OTHER WEEK
     Route: 042
  3. PACLITAXEL [Suspect]
     Indication: BREAST CANCER METASTATIC
     Dosage: WEEKLY ON 3 WEEKS OFF 1 WEEK
     Route: 042
  4. NORVASC [Concomitant]
     Route: 065
  5. ADVIL LIQUI-GELS [Concomitant]
     Route: 065
  6. ALEVE [Concomitant]
     Route: 065
  7. METOPROLOL TARTRATE [Concomitant]
     Route: 065
  8. LACTATED RINGER'S [Concomitant]
     Route: 065
  9. MIDAZOLAM HYDROCHLORIDE [Concomitant]
     Route: 065
  10. FENTANYL [Concomitant]
     Route: 065
  11. CEFAZOLIN [Concomitant]
     Route: 065
  12. PROPOFOL [Concomitant]
     Route: 065
  13. AMLODIPINE [Concomitant]
     Route: 065
  14. DEXAMETHASONE [Concomitant]
     Route: 065
  15. TRAMADOL HCL [Concomitant]
     Route: 065

REACTIONS (1)
  - MENISCUS LESION [None]
